FAERS Safety Report 8799728 (Version 1)
Quarter: 2012Q4

REPORT INFORMATION
  Report Type: Spontaneous
  Country: US (occurrence: None)
  Receive Date: 20120918
  Receipt Date: 20120918
  Transmission Date: 20130627
  Serious: Yes (Hospitalization)
  Sender: FDA-Public Use
  Company Number: None

PATIENT
  Age: 73 Year
  Sex: Male
  Weight: 88 kg

DRUGS (2)
  1. INSULIN [Suspect]
     Dosage: ml other sq
  2. INSULIN [Suspect]
     Dosage: ml other sq
     Dates: start: 20091008, end: 20120712

REACTIONS (4)
  - Lipodystrophy acquired [None]
  - Hypoglycaemia [None]
  - Asthenia [None]
  - Tremor [None]
